FAERS Safety Report 11339576 (Version 1)
Quarter: 2015Q3

REPORT INFORMATION
  Report Type: Spontaneous
  Country: US (occurrence: US)
  Receive Date: 20150805
  Receipt Date: 20150805
  Transmission Date: 20151125
  Serious: No
  Sender: FDA-Public Use
  Company Number: US-ASTRAZENECA-2015SE72479

PATIENT
  Age: 57 Year
  Sex: Male

DRUGS (1)
  1. BYDUREON [Suspect]
     Active Substance: EXENATIDE
     Dosage: 2 MG 4 COUNT, 2 MG ONCE A WEEK
     Route: 058

REACTIONS (7)
  - Arthritis [Unknown]
  - Confusional state [Unknown]
  - Injection site extravasation [Unknown]
  - Intentional device misuse [Unknown]
  - Ear pain [Unknown]
  - Headache [Unknown]
  - Injection site haemorrhage [Unknown]
